FAERS Safety Report 19404968 (Version 2)
Quarter: 2021Q2

REPORT INFORMATION
  Report Type: Other
  Country: GB (occurrence: GB)
  Receive Date: 20210611
  Receipt Date: 20210621
  Transmission Date: 20210717
  Serious: Yes (Other)
  Sender: FDA-Public Use
  Company Number: GB-ASTELLAS-2021US020931

PATIENT
  Age: 19 Year
  Sex: Female

DRUGS (6)
  1. MYCOPHENOLATE MOFETIL. [Suspect]
     Active Substance: MYCOPHENOLATE MOFETIL
     Indication: PROPHYLAXIS AGAINST GRAFT VERSUS HOST DISEASE
     Route: 065
     Dates: start: 201911
  2. SIROLIMUS. [Concomitant]
     Active Substance: SIROLIMUS
     Indication: PRODUCT USED FOR UNKNOWN INDICATION
     Dosage: 1 MG, THRICE WEEKLY (3X QW)
     Route: 065
  3. METHOTREXATE. [Suspect]
     Active Substance: METHOTREXATE
     Indication: GRAFT VERSUS HOST DISEASE
     Dosage: UNK UNK, UNKNOWN FREQ.
     Route: 065
  4. CYCLOPHOSPHAMIDE. [Concomitant]
     Active Substance: CYCLOPHOSPHAMIDE
     Indication: PRODUCT USED FOR UNKNOWN INDICATION
     Dosage: UNK UNK, UNKNOWN FREQ.
     Route: 065
  5. TACROLIMUS. [Suspect]
     Active Substance: TACROLIMUS
     Indication: GRAFT VERSUS HOST DISEASE
     Dosage: UNK UNK, UNKNOWN FREQ.
     Route: 065
  6. CYCLOSPORINE. [Suspect]
     Active Substance: CYCLOSPORINE
     Indication: PROPHYLAXIS AGAINST GRAFT VERSUS HOST DISEASE
     Dosage: UNK UNK, UNKNOWN FREQ.
     Route: 065

REACTIONS (16)
  - Craniocerebral injury [Unknown]
  - Oral disorder [Unknown]
  - Product use in unapproved indication [Unknown]
  - Erythema [Unknown]
  - Morphoea [Unknown]
  - Mouth ulceration [Unknown]
  - Eosinophil count increased [Unknown]
  - Ulcer [Unknown]
  - Therapeutic response decreased [Unknown]
  - Diarrhoea [Unknown]
  - Dysplasia [Unknown]
  - Pain [Unknown]
  - Pruritus [Recovering/Resolving]
  - Drug intolerance [Unknown]
  - Acute graft versus host disease [Unknown]
  - Gingivitis [Unknown]
